FAERS Safety Report 8805475 (Version 2)
Quarter: 2012Q4

REPORT INFORMATION
  Report Type: 
  Country: US (occurrence: US)
  Receive Date: 20120924
  Receipt Date: 20121224
  Transmission Date: 20130627
  Serious: Yes (Death, Hospitalization, Other)
  Sender: FDA-Public Use
  Company Number: US-ROCHE-1135667

PATIENT
  Age: 49 Year
  Sex: Female

DRUGS (6)
  1. XELODA [Suspect]
     Indication: PANCREATIC CARCINOMA
     Route: 065
     Dates: start: 20091218, end: 20100803
  2. XELODA [Suspect]
     Indication: METASTASES TO LIVER
  3. AVASTIN [Suspect]
     Indication: PRODUCT USED FOR UNKNOWN INDICATION
     Route: 048
     Dates: start: 20091217, end: 20100511
  4. OXALIPLATIN [Suspect]
     Indication: PRODUCT USED FOR UNKNOWN INDICATION
     Route: 065
     Dates: start: 20091218
  5. LEUCOVORIN [Concomitant]
     Route: 065
  6. 5-FU [Concomitant]
     Route: 065

REACTIONS (4)
  - Death [Fatal]
  - Colonic obstruction [Unknown]
  - Bone marrow failure [Unknown]
  - Drug intolerance [Unknown]
